FAERS Safety Report 5822258-4 (Version None)
Quarter: 2008Q3

REPORT INFORMATION
  Report Type: 
  Country: None (occurrence: None)
  Receive Date: 20080725
  Receipt Date: 20080714
  Transmission Date: 20090109
  Serious: Yes (Other)
  Sender: FDA-Public Use
  Company Number: US-ELI_LILLY_AND_COMPANY-US200807002537

PATIENT
  Sex: Female

DRUGS (1)
  1. STRATTERA [Suspect]
     Dosage: 18 MG, UNK

REACTIONS (6)
  - ASTHENIA [None]
  - HEART RATE INCREASED [None]
  - LOSS OF CONTROL OF LEGS [None]
  - NAUSEA [None]
  - PARAESTHESIA [None]
  - VOMITING [None]
